FAERS Safety Report 9237514 (Version 5)
Quarter: 2013Q4

REPORT INFORMATION
  Report Type: Spontaneous
  Country: US (occurrence: US)
  Receive Date: 20130417
  Receipt Date: 20131004
  Transmission Date: 20140711
  Serious: Yes (Hospitalization, Other)
  Sender: FDA-Public Use
  Company Number: US-MERCK-1304USA008442

PATIENT
  Sex: Male
  Weight: 93.42 kg

DRUGS (3)
  1. JANUVIA [Suspect]
     Indication: TYPE 2 DIABETES MELLITUS
     Dosage: 50 MG, QD
     Route: 048
     Dates: start: 20081007, end: 201007
  2. JANUVIA [Suspect]
     Dosage: 100 MG, QD
     Route: 048
     Dates: start: 201008, end: 20100913
  3. ALLEGRA [Concomitant]
     Indication: HYPERSENSITIVITY
     Dosage: 180 MG, QD AS NEEDED
     Route: 048

REACTIONS (37)
  - Pancreatic carcinoma [Unknown]
  - Pancreaticoduodenectomy [Unknown]
  - Biliary tract infection [Recovered/Resolved]
  - Malignant melanoma in situ [Unknown]
  - Pancreatitis acute [Unknown]
  - Anxiety [Unknown]
  - Pancreatic cyst [Unknown]
  - Biliary neoplasm [Unknown]
  - Wound [Unknown]
  - Dermal cyst [Unknown]
  - Hyperlipidaemia [Unknown]
  - Bile duct obstruction [Unknown]
  - Bile duct stent insertion [Unknown]
  - Skin neoplasm excision [Unknown]
  - Asthma [Unknown]
  - Fistula repair [Unknown]
  - Tonsillectomy [Unknown]
  - Pulmonary granuloma [Unknown]
  - Pulmonary fibrosis [Unknown]
  - Pulmonary mass [Unknown]
  - Thyroid neoplasm [Unknown]
  - Lymphadenopathy [Unknown]
  - Diverticulum [Unknown]
  - Renal cyst [Unknown]
  - Renal disorder [Unknown]
  - Scab [Unknown]
  - Eschar [Unknown]
  - Gynaecomastia [Recovered/Resolved]
  - Pericardial effusion [Unknown]
  - Pneumobilia [Unknown]
  - Inguinal hernia [Unknown]
  - Bone lesion [Unknown]
  - Fatigue [Unknown]
  - Suture related complication [Unknown]
  - Musculoskeletal chest pain [Unknown]
  - Liver function test abnormal [Unknown]
  - Arthralgia [Unknown]
